FAERS Safety Report 4662675-1 (Version None)
Quarter: 2005Q2

REPORT INFORMATION
  Report Type: 
  Country: None (occurrence: None)
  Receive Date: 20050516
  Receipt Date: 20041013
  Transmission Date: 20051028
  Serious: Yes (Other)
  Sender: FDA-Public Use
  Company Number: CA-GLAXOSMITHKLINE-A0530689A

PATIENT
  Age: 29 Year
  Sex: Female

DRUGS (3)
  1. COMBIVIR [Suspect]
     Indication: HIV INFECTION
     Dosage: 1TAB TWICE PER DAY
     Route: 048
     Dates: start: 20040310
  2. ATAZANAVIR [Concomitant]
     Indication: HIV INFECTION
     Dosage: 200MG TWICE PER DAY
     Route: 048
     Dates: start: 20040712
  3. IRON SUPPLEMENT [Concomitant]
     Dosage: 300MG TWICE PER DAY
     Dates: start: 20040712

REACTIONS (6)
  - ABORTION INDUCED [None]
  - AMNIOCENTESIS ABNORMAL [None]
  - DRUG EXPOSURE DURING PREGNANCY [None]
  - HYDROPS FOETALIS [None]
  - PLEURAL EFFUSION [None]
  - ULTRASOUND ANTENATAL SCREEN ABNORMAL [None]
